FAERS Safety Report 25936760 (Version 1)
Quarter: 2025Q4

REPORT INFORMATION
  Report Type: Spontaneous
  Country: US (occurrence: US)
  Receive Date: 20251017
  Receipt Date: 20251017
  Transmission Date: 20260117
  Serious: Yes (Hospitalization)
  Sender: Alora Pharma
  Company Number: US-VERTICAL PHARMACEUTICALS-2025ALO02551

PATIENT
  Age: 76 Year
  Sex: Male

DRUGS (1)
  1. SUFENTANIL [Suspect]
     Active Substance: SUFENTANIL
     Dosage: UNK
     Route: 051

REACTIONS (6)
  - Depressed level of consciousness [Recovered/Resolved]
  - Respiratory depression [Recovered/Resolved]
  - Bradycardia [Recovered/Resolved]
  - Hypotension [Recovered/Resolved]
  - Accidental exposure to product [Unknown]
  - Medication error [Unknown]

NARRATIVE: CASE EVENT DATE: 20240721
